FAERS Safety Report 6920386-3 (Version None)
Quarter: 2010Q3

REPORT INFORMATION
  Report Type: 
  Country: None (occurrence: None)
  Receive Date: 20100804
  Receipt Date: 20100326
  Transmission Date: 20110219
  Serious: No
  Sender: FDA-Public Use
  Company Number: 2010-1018

PATIENT
  Age: 53 Year
  Sex: Male
  Weight: 120.5 kg

DRUGS (4)
  1. SOMATULINE DEPOT [Suspect]
     Indication: ACROMEGALY
     Dosage: 90 MG (90 MG,1 IN 4 WK), SUBCUTANEOUS
     Route: 058
     Dates: start: 20100101
  2. LOVASTATIN [Concomitant]
  3. ZOLOFT [Concomitant]
  4. ADVIL LIQUI-GELS [Concomitant]

REACTIONS (2)
  - HEADACHE [None]
  - PYREXIA [None]
